FAERS Safety Report 11720571 (Version 3)
Quarter: 2016Q1

REPORT INFORMATION
  Report Type: Spontaneous
  Country: US (occurrence: US)
  Receive Date: 20151110
  Receipt Date: 20160201
  Transmission Date: 20160525
  Serious: Yes (Hospitalization, Other)
  Sender: FDA-Public Use
  Company Number: US-BRISTOL-MYERS SQUIBB COMPANY-BMS-2015-076521

PATIENT
  Age: 41 Year
  Sex: Male

DRUGS (12)
  1. NICOTINE. [Suspect]
     Active Substance: NICOTINE
     Indication: TOBACCO INTERACTION
     Dosage: UNK
     Route: 065
     Dates: start: 20151029, end: 20151102
  2. ASPIRIN                            /00002701/ [Concomitant]
     Active Substance: ASPIRIN
     Indication: PRODUCT USED FOR UNKNOWN INDICATION
     Dosage: 81 MG, UNK
     Route: 065
  3. ELIQUIS [Suspect]
     Active Substance: APIXABAN
     Dosage: 2.5 MG, UNK
     Route: 065
     Dates: start: 20151029
  4. ZANTAC [Suspect]
     Active Substance: RANITIDINE HYDROCHLORIDE
     Indication: GASTROOESOPHAGEAL REFLUX DISEASE
     Dosage: 150 MG, BID
     Route: 048
     Dates: start: 20151027
  5. MAGNESIUM [Concomitant]
     Active Substance: MAGNESIUM
     Indication: PRODUCT USED FOR UNKNOWN INDICATION
     Route: 065
  6. POTASSIUM [Concomitant]
     Active Substance: POTASSIUM
     Indication: PRODUCT USED FOR UNKNOWN INDICATION
     Route: 065
  7. PROTONIX                           /00661201/ [Concomitant]
     Active Substance: OMEPRAZOLE
     Indication: PRODUCT USED FOR UNKNOWN INDICATION
     Route: 065
  8. ELIQUIS [Suspect]
     Active Substance: APIXABAN
     Indication: THROMBOSIS PROPHYLAXIS
     Dosage: 5 MG, UNK
     Route: 065
     Dates: start: 20151029
  9. TIKOSYN [Suspect]
     Active Substance: DOFETILIDE
     Indication: SINUS RHYTHM
     Dosage: 500 MG, BID
     Route: 048
     Dates: start: 20151028, end: 20151030
  10. KLONOPIN [Concomitant]
     Active Substance: CLONAZEPAM
     Indication: PRODUCT USED FOR UNKNOWN INDICATION
     Route: 065
  11. LOSARTAN. [Concomitant]
     Active Substance: LOSARTAN
     Indication: PRODUCT USED FOR UNKNOWN INDICATION
     Route: 065
  12. METOPROLOL. [Concomitant]
     Active Substance: METOPROLOL
     Indication: PRODUCT USED FOR UNKNOWN INDICATION
     Route: 065

REACTIONS (8)
  - Sinus tachycardia [Unknown]
  - Troponin increased [Unknown]
  - Extrasystoles [Unknown]
  - Paranoia [Recovered/Resolved]
  - Hallucination [Recovered/Resolved]
  - Ventricular tachycardia [Unknown]
  - Psychotic disorder [Recovered/Resolved]
  - Liver disorder [Unknown]

NARRATIVE: CASE EVENT DATE: 20151029
